FAERS Safety Report 22223909 (Version 2)
Quarter: 2024Q3

REPORT INFORMATION
  Report Type: Spontaneous
  Country: US (occurrence: US)
  Receive Date: 20230418
  Receipt Date: 20240728
  Transmission Date: 20241016
  Serious: No
  Sender: SUNOVION
  Company Number: US-UROVANT SCIENCES GMBH-202301-URV-000081

PATIENT
  Sex: Female

DRUGS (1)
  1. GEMTESA [Suspect]
     Active Substance: VIBEGRON
     Indication: Hypertonic bladder
     Dosage: 75 MG, QD
     Route: 048

REACTIONS (7)
  - Therapeutic product effect decreased [Unknown]
  - Pollakiuria [Unknown]
  - Nocturia [Unknown]
  - Urinary incontinence [Unknown]
  - Urine flow decreased [Unknown]
  - Therapy interrupted [Unknown]
  - Insurance issue [Unknown]
